FAERS Safety Report 24755171 (Version 1)
Quarter: 2024Q4

REPORT INFORMATION
  Report Type: Spontaneous
  Country: US (occurrence: None)
  Receive Date: 20241218
  Receipt Date: 20241218
  Transmission Date: 20250114
  Serious: No
  Sender: Public
  Company Number: None

PATIENT
  Age: 64 Year
  Sex: Male
  Weight: 82 kg

DRUGS (1)
  1. DOCETAXEL [Suspect]
     Active Substance: DOCETAXEL
     Dosage: OTHER FREQUENCY : ONCE;?
     Route: 042
     Dates: start: 20220909, end: 20220909

REACTIONS (6)
  - Anaphylactic reaction [None]
  - Angioedema [None]
  - Vision blurred [None]
  - Diarrhoea [None]
  - Visual impairment [None]
  - Drug hypersensitivity [None]

NARRATIVE: CASE EVENT DATE: 20220909
